FAERS Safety Report 8078027-0 (Version None)
Quarter: 2012Q1

REPORT INFORMATION
  Report Type: 
  Country: None (occurrence: None)
  Receive Date: 20120127
  Receipt Date: 20110302
  Transmission Date: 20120608
  Serious: No
  Sender: FDA-Public Use
  Company Number: US-ABBOTT-10P-163-0681812-00

PATIENT
  Age: 62 Year
  Sex: Male

DRUGS (10)
  1. HUMIRA [Suspect]
     Indication: PSORIASIS
     Dates: start: 20100901
  2. WELLBUTRIN XL [Concomitant]
     Indication: MAJOR DEPRESSION
     Dosage: EVERY MORNING
  3. EFFEXOR [Concomitant]
     Indication: PRODUCT USED FOR UNKNOWN INDICATION
  4. FINASTERIDE [Concomitant]
     Indication: PROSTATIC DISORDER
     Dosage: QD
  5. HYDROCHLOROTHIAZIDE [Concomitant]
     Indication: FLUID RETENTION
  6. KLONOPIN [Concomitant]
     Indication: PRODUCT USED FOR UNKNOWN INDICATION
     Dosage: 1-2 MG
  7. TRAZODONE HCL [Concomitant]
     Indication: INSOMNIA
     Dosage: ONCE DAILY AT BEDTIME
  8. DOXAPIN [Concomitant]
     Indication: PROSTATIC DISORDER
     Dosage: QD
  9. WELLBUTRIN XL [Concomitant]
     Indication: ANXIETY
  10. BUSPAR [Concomitant]
     Indication: PRODUCT USED FOR UNKNOWN INDICATION

REACTIONS (2)
  - INJECTION SITE HAEMATOMA [None]
  - INJECTION SITE PAIN [None]
